FAERS Safety Report 6733683-1 (Version None)
Quarter: 2010Q2

REPORT INFORMATION
  Report Type: 
  Country: None (occurrence: None)
  Receive Date: 20100520
  Receipt Date: 20100512
  Transmission Date: 20101027
  Serious: Yes (Other)
  Sender: FDA-Public Use
  Company Number: CO-MILLENNIUM PHARMACEUTICALS, INC.-2010-02616

PATIENT

DRUGS (3)
  1. VELCADE [Suspect]
     Indication: MULTIPLE MYELOMA
     Dosage: 1.7 MG/M2, UNK
  2. DEXAMETHASONE [Concomitant]
     Indication: MULTIPLE MYELOMA
  3. ONDANSETRON [Concomitant]
     Indication: MULTIPLE MYELOMA

REACTIONS (2)
  - PATHOLOGICAL FRACTURE [None]
  - RENAL FAILURE [None]
